FAERS Safety Report 6025259-9 (Version None)
Quarter: 2008Q4

REPORT INFORMATION
  Report Type: 
  Country: None (occurrence: None)
  Receive Date: 20081229
  Receipt Date: 20081229
  Transmission Date: 20090506
  Serious: Yes (Hospitalization)
  Sender: FDA-Public Use
  Company Number: None

PATIENT
  Age: 13 Year
  Sex: Male
  Weight: 58.9676 kg

DRUGS (2)
  1. VYVANSE [Suspect]
     Indication: ABNORMAL BEHAVIOUR
     Dosage: 50 MG 1 EVERY MORNING PO
     Route: 048
     Dates: start: 20081105, end: 20081225
  2. VYVANSE [Suspect]
     Indication: ANGER
     Dosage: 50 MG 1 EVERY MORNING PO
     Route: 048
     Dates: start: 20081105, end: 20081225

REACTIONS (8)
  - ABNORMAL BEHAVIOUR [None]
  - ACCIDENT [None]
  - ANOREXIA [None]
  - CONFUSIONAL STATE [None]
  - CONVULSION [None]
  - DIZZINESS [None]
  - FALL [None]
  - SOMNAMBULISM [None]
